FAERS Safety Report 6370045-3 (Version None)
Quarter: 2009Q3

REPORT INFORMATION
  Report Type: 
  Country: None (occurrence: None)
  Receive Date: 20090923
  Receipt Date: 20090918
  Transmission Date: 20100115
  Serious: Yes (Death, Hospitalization, Other)
  Sender: FDA-Public Use
  Company Number: GB-JNJFOC-20090906213

PATIENT
  Age: 61 Year
  Sex: Female

DRUGS (8)
  1. REOPRO [Suspect]
     Indication: DRUG USE FOR UNKNOWN INDICATION
  2. ASPIRIN [Suspect]
     Indication: DRUG USE FOR UNKNOWN INDICATION
  3. BIVALIRUDIN [Suspect]
     Route: 042
  4. BIVALIRUDIN [Suspect]
     Indication: ANGINA PECTORIS
     Route: 042
  5. CLOPIDOGREL [Suspect]
     Route: 042
  6. CLOPIDOGREL [Suspect]
     Indication: DRUG USE FOR UNKNOWN INDICATION
     Route: 042
  7. HEPARIN SODIUM [Suspect]
     Indication: ANGIOPLASTY
     Dosage: 3000 DF
  8. BETA BLOCKERS, NOS [Concomitant]
     Indication: DRUG USE FOR UNKNOWN INDICATION

REACTIONS (3)
  - CORONARY ARTERY THROMBOSIS [None]
  - PUNCTURE SITE HAEMORRHAGE [None]
  - SUBDURAL HAEMORRHAGE [None]
